FAERS Safety Report 9172022 (Version 1)
Quarter: 2013Q1

REPORT INFORMATION
  Report Type: Spontaneous
  Country: US (occurrence: US)
  Receive Date: 20130319
  Receipt Date: 20130319
  Transmission Date: 20140127
  Serious: Yes (Other)
  Sender: FDA-Public Use
  Company Number: US-BAYER-2013-033269

PATIENT
  Age: 23 Year
  Sex: Female

DRUGS (2)
  1. ULTRAVIST [Suspect]
     Indication: COMPUTERISED TOMOGRAM ABDOMEN
     Dosage: 100 ML, ONCE
     Dates: start: 20130315, end: 20130315
  2. ULTRAVIST [Suspect]
     Indication: ABDOMINAL PAIN LOWER

REACTIONS (4)
  - Pharyngeal oedema [None]
  - Urticaria [None]
  - Sneezing [None]
  - Pruritus [None]
